FAERS Safety Report 8876371 (Version 1)
Quarter: 2012Q4

REPORT INFORMATION
  Report Type: 
  Country: US (occurrence: US)
  Receive Date: 20121023
  Receipt Date: 20121023
  Transmission Date: 20130627
  Serious: Yes (Other)
  Sender: FDA-Public Use
  Company Number: SE-ASTELLAS-2012US002580

PATIENT
  Age: 67 None
  Sex: Female
  Weight: 75 kg

DRUGS (13)
  1. LEXISCAN [Suspect]
     Indication: SCAN MYOCARDIAL PERFUSION
     Dosage: UNK
     Route: 042
     Dates: start: 20120222, end: 20120222
  2. AMINOPHYLLINE [Suspect]
     Indication: PRODUCT USED FOR UNKNOWN INDICATION
     Dosage: 50 mg, Total Dose, given 3 minutes after administration of regadenoson.
     Route: 042
     Dates: start: 20120222, end: 20120222
  3. PRINIVIL [Concomitant]
     Indication: PRODUCT USED FOR UNKNOWN INDICATION
     Dosage: 20 mg, UID/QD
     Route: 048
     Dates: end: 201202
  4. PRINIVIL [Concomitant]
     Dosage: 40 mg, UID/QD
     Route: 048
     Dates: start: 201202, end: 201202
  5. PRINIVIL [Concomitant]
     Dosage: 20 mg, UID/QD
     Route: 048
     Dates: start: 201202
  6. ALBUTEROL [Concomitant]
     Indication: PRODUCT USED FOR UNKNOWN INDICATION
     Dosage: UNK
     Route: 055
  7. ASPIRIN [Concomitant]
     Indication: PRODUCT USED FOR UNKNOWN INDICATION
     Dosage: 81 mg, UID/QD
     Route: 048
  8. CALCIUM CITRATE W/VITAMIN D NOS [Concomitant]
     Indication: PRODUCT USED FOR UNKNOWN INDICATION
     Dosage: UNK
     Route: 048
  9. MULTIVITAMIN [Concomitant]
     Indication: PRODUCT USED FOR UNKNOWN INDICATION
     Dosage: UNK
     Route: 048
  10. NITROSTAT [Concomitant]
     Indication: ANGINA PECTORIS
     Dosage: UNK, 1 tablet every 5 minutes as needed;maximun 3 doses within 15 minutes
     Route: 060
  11. OMEPRAZOLE [Concomitant]
     Indication: PRODUCT USED FOR UNKNOWN INDICATION
     Dosage: 20 mg, UID/QD
     Route: 048
  12. PREDNISONE [Concomitant]
     Indication: PRODUCT USED FOR UNKNOWN INDICATION
     Dosage: 20 mg, bid
     Route: 048
  13. LASIX [Concomitant]
     Indication: PRODUCT USED FOR UNKNOWN INDICATION
     Dosage: UNK
     Route: 065

REACTIONS (5)
  - Angioedema [Recovered/Resolved]
  - Lip swelling [Recovered/Resolved]
  - Headache [Recovered/Resolved]
  - Dyspnoea [Recovered/Resolved]
  - Blood pressure increased [Unknown]
